FAERS Safety Report 6682606-2 (Version None)
Quarter: 2010Q2

REPORT INFORMATION
  Report Type: 
  Country: None (occurrence: None)
  Receive Date: 20100415
  Receipt Date: 20100330
  Transmission Date: 20101027
  Serious: Yes (Hospitalization, Other)
  Sender: FDA-Public Use
  Company Number: PHHY2010CA19398

PATIENT
  Sex: Male

DRUGS (8)
  1. EXELON [Suspect]
     Indication: DEMENTIA
     Dosage: UNK
     Route: 062
     Dates: end: 20090616
  2. BISOPROLOL [Concomitant]
     Dosage: 5 MG
  3. CRESTOR [Concomitant]
  4. RYTHMOL [Concomitant]
     Dosage: 300 MG, BID
  5. FOSINOPRIL SODIUM [Concomitant]
     Dosage: 20 MG, QD
  6. COUMADIN [Concomitant]
     Dosage: 5 MG
  7. ATASOL [Concomitant]
  8. OXAZEPAM [Concomitant]

REACTIONS (4)
  - BRADYARRHYTHMIA [None]
  - DIZZINESS [None]
  - HYPOTENSION [None]
  - SYNCOPE [None]
